FAERS Safety Report 20109595 (Version 1)
Quarter: 2021Q4

REPORT INFORMATION
  Report Type: Spontaneous
  Country: US (occurrence: None)
  Receive Date: 20211124
  Receipt Date: 20211124
  Transmission Date: 20220303
  Serious: Yes (Other)
  Sender: FDA-Public Use
  Company Number: None

PATIENT
  Sex: Female
  Weight: 88.65 kg

DRUGS (1)
  1. BENAZEPRIL [Suspect]
     Active Substance: BENAZEPRIL HYDROCHLORIDE
     Dates: start: 20211020, end: 20211123

REACTIONS (5)
  - Nausea [None]
  - Retching [None]
  - Hypertension [None]
  - Drug screen positive [None]
  - Suspected product quality issue [None]
